FAERS Safety Report 16009612 (Version 2)
Quarter: 2019Q2

REPORT INFORMATION
  Report Type: Report from Study
  Country: KR (occurrence: KR)
  Receive Date: 20190225
  Receipt Date: 20190502
  Transmission Date: 20190711
  Serious: Yes (Hospitalization, Other)
  Sender: FDA-Public Use
  Company Number: KR-GLAXOSMITHKLINE-KR2019GSK029007

PATIENT
  Age: 75 Year
  Sex: Female
  Weight: 67 kg

DRUGS (4)
  1. ALBIS [Concomitant]
     Active Substance: BISMUTH SUBCITRATE\RANITIDINE HYDROCHLORIDE\SUCRALFATE
     Indication: GASTROINTESTINAL DISORDER PROPHYLAXIS
     Dosage: 1 TABLET BID
     Dates: start: 20170406
  2. UMECLIDINIUM BR+VILANTEROL TRIFENATATE [Suspect]
     Active Substance: UMECLIDINIUM BROMIDE\VILANTEROL TRIFENATATE
     Indication: CHRONIC OBSTRUCTIVE PULMONARY DISEASE
     Dosage: 62.5/25MCG QD
     Route: 055
     Dates: start: 20170907
  3. ASIMA [Concomitant]
     Active Substance: DOXOFYLLINE
     Indication: CHRONIC OBSTRUCTIVE PULMONARY DISEASE
     Dosage: 400 MG, BID
     Dates: start: 20170406
  4. PRANAIR [Concomitant]
     Indication: RHINITIS ALLERGIC
     Dosage: 112.5 MG, BID
     Dates: start: 20170504

REACTIONS (1)
  - Malignant neoplasm of thymus [Recovered/Resolved]

NARRATIVE: CASE EVENT DATE: 20171128
